FAERS Safety Report 9822112 (Version 1)
Quarter: 2014Q1

REPORT INFORMATION
  Report Type: Spontaneous
  Country: IT (occurrence: None)
  Receive Date: 20140115
  Receipt Date: 20140115
  Transmission Date: 20141002
  Serious: Yes (Other)
  Sender: FDA-Public Use
  Company Number: AXC-2014-000010

PATIENT
  Sex: Male

DRUGS (2)
  1. NITROGLYCERIN [Suspect]
     Indication: PRODUCT USED FOR UNKNOWN INDICATION
  2. NI [Concomitant]

REACTIONS (2)
  - Hypokalaemia [None]
  - Unevaluable event [None]
